FAERS Safety Report 20063167 (Version 1)
Quarter: 2021Q4

REPORT INFORMATION
  Report Type: Other
  Country: CA (occurrence: CA)
  Receive Date: 20211112
  Receipt Date: 20211112
  Transmission Date: 20220303
  Serious: Yes (Hospitalization, Other)
  Sender: FDA-Public Use
  Company Number: CA-002147023-NVSC2021CA251387

PATIENT
  Sex: Female

DRUGS (28)
  1. XOLAIR [Suspect]
     Active Substance: OMALIZUMAB
     Indication: Asthma
     Route: 058
     Dates: start: 20130529
  2. XOLAIR [Suspect]
     Active Substance: OMALIZUMAB
     Route: 058
     Dates: start: 20130820
  3. XOLAIR [Suspect]
     Active Substance: OMALIZUMAB
     Route: 058
     Dates: start: 20140204
  4. XOLAIR [Suspect]
     Active Substance: OMALIZUMAB
     Route: 058
     Dates: start: 20140303
  5. XOLAIR [Suspect]
     Active Substance: OMALIZUMAB
     Route: 058
     Dates: start: 20140401
  6. XOLAIR [Suspect]
     Active Substance: OMALIZUMAB
     Route: 058
     Dates: start: 20140528
  7. XOLAIR [Suspect]
     Active Substance: OMALIZUMAB
     Route: 058
     Dates: start: 20140625
  8. XOLAIR [Suspect]
     Active Substance: OMALIZUMAB
     Route: 058
     Dates: start: 20140723
  9. XOLAIR [Suspect]
     Active Substance: OMALIZUMAB
     Route: 058
     Dates: start: 20140820
  10. XOLAIR [Suspect]
     Active Substance: OMALIZUMAB
     Route: 058
     Dates: start: 20140918
  11. XOLAIR [Suspect]
     Active Substance: OMALIZUMAB
     Route: 058
     Dates: start: 20141125
  12. XOLAIR [Suspect]
     Active Substance: OMALIZUMAB
     Route: 058
     Dates: start: 20150121
  13. XOLAIR [Suspect]
     Active Substance: OMALIZUMAB
     Route: 058
     Dates: start: 20150319
  14. XOLAIR [Suspect]
     Active Substance: OMALIZUMAB
     Route: 058
     Dates: start: 20150401
  15. XOLAIR [Suspect]
     Active Substance: OMALIZUMAB
     Route: 058
     Dates: start: 20150420
  16. XOLAIR [Suspect]
     Active Substance: OMALIZUMAB
     Route: 058
     Dates: start: 20150506
  17. XOLAIR [Suspect]
     Active Substance: OMALIZUMAB
     Route: 058
     Dates: start: 20150520
  18. XOLAIR [Suspect]
     Active Substance: OMALIZUMAB
     Route: 058
     Dates: start: 20150603
  19. XOLAIR [Suspect]
     Active Substance: OMALIZUMAB
     Route: 058
     Dates: start: 20150617
  20. XOLAIR [Suspect]
     Active Substance: OMALIZUMAB
     Route: 058
     Dates: start: 20150629
  21. XOLAIR [Suspect]
     Active Substance: OMALIZUMAB
     Route: 058
     Dates: start: 20150715
  22. XOLAIR [Suspect]
     Active Substance: OMALIZUMAB
     Route: 058
     Dates: start: 20150826
  23. XOLAIR [Suspect]
     Active Substance: OMALIZUMAB
     Route: 058
     Dates: start: 20150909
  24. XOLAIR [Suspect]
     Active Substance: OMALIZUMAB
     Route: 058
     Dates: start: 20150923
  25. XOLAIR [Suspect]
     Active Substance: OMALIZUMAB
     Route: 058
     Dates: start: 20151021
  26. VENTOLIN [Concomitant]
     Active Substance: ALBUTEROL SULFATE
     Indication: Product used for unknown indication
     Dosage: UNK
     Route: 065
     Dates: start: 20130529
  27. CLONIDINE [Concomitant]
     Active Substance: CLONIDINE
     Indication: Hot flush
     Dosage: 2 DF, QD
     Route: 065
     Dates: start: 2005
  28. CLONIDINE [Concomitant]
     Active Substance: CLONIDINE
     Dosage: 0.5 DF, QD
     Route: 065
     Dates: start: 2005

REACTIONS (52)
  - Pulmonary embolism [Unknown]
  - Chest pain [Unknown]
  - Nausea [Unknown]
  - Pneumonia fungal [Unknown]
  - Pulmonary mass [Unknown]
  - Aspergillus infection [Unknown]
  - Respiratory moniliasis [Unknown]
  - Wheezing [Not Recovered/Not Resolved]
  - Concomitant disease progression [Unknown]
  - Respiratory distress [Unknown]
  - Lower respiratory tract infection [Recovering/Resolving]
  - Bronchitis [Unknown]
  - Rheumatoid arthritis [Unknown]
  - Hypoventilation [Unknown]
  - Hypothyroidism [Unknown]
  - Hypersensitivity [Unknown]
  - Paraesthesia oral [Unknown]
  - Oropharyngeal pain [Unknown]
  - Throat irritation [Recovering/Resolving]
  - Cough [Not Recovered/Not Resolved]
  - Pharyngeal erythema [Unknown]
  - Diarrhoea [Unknown]
  - Cystitis [Unknown]
  - Influenza [Recovered/Resolved]
  - Lung disorder [Unknown]
  - Ear pain [Unknown]
  - Lymphadenopathy [Unknown]
  - Pulmonary function test abnormal [Unknown]
  - Productive cough [Unknown]
  - Malaise [Unknown]
  - Hepatic enzyme increased [Unknown]
  - Sputum discoloured [Unknown]
  - Red blood cell count increased [Unknown]
  - Hypotension [Unknown]
  - Infection [Unknown]
  - Blood pressure increased [Unknown]
  - Oxygen saturation decreased [Recovering/Resolving]
  - Sneezing [Unknown]
  - Pulmonary pain [Unknown]
  - Viral infection [Recovered/Resolved]
  - Fatigue [Unknown]
  - Pyrexia [Unknown]
  - Rales [Unknown]
  - Urinary tract infection [Unknown]
  - Migraine [Unknown]
  - Dyspnoea [Not Recovered/Not Resolved]
  - Somnolence [Unknown]
  - Sinusitis [Recovering/Resolving]
  - Head discomfort [Unknown]
  - Nasopharyngitis [Recovered/Resolved]
  - Injection site bruising [Unknown]
  - Product administered at inappropriate site [Unknown]

NARRATIVE: CASE EVENT DATE: 20130529
